FAERS Safety Report 12053243 (Version 1)
Quarter: 2016Q1

REPORT INFORMATION
  Report Type: Report from Study
  Country: US (occurrence: US)
  Receive Date: 20160209
  Receipt Date: 20160209
  Transmission Date: 20160526
  Serious: No
  Sender: FDA-Public Use
  Company Number: US-ABBVIE-15P-163-1455845-00

PATIENT
  Age: 79 Year
  Sex: Female
  Weight: 78.54 kg

DRUGS (8)
  1. LOSARTAN. [Concomitant]
     Active Substance: LOSARTAN
     Indication: HYPERTENSION
  2. HUMIRA [Suspect]
     Active Substance: ADALIMUMAB
     Indication: PSORIASIS
     Route: 058
     Dates: start: 201507, end: 201507
  3. METFORMIN [Concomitant]
     Active Substance: METFORMIN HYDROCHLORIDE
     Indication: DIABETES MELLITUS
  4. GABAPENTIN. [Suspect]
     Active Substance: GABAPENTIN
     Indication: NEURALGIA
     Route: 065
     Dates: start: 20150828
  5. HUMIRA [Suspect]
     Active Substance: ADALIMUMAB
     Dosage: TWO WEEKS AFTER 80MG DOSE
     Route: 058
     Dates: start: 2015
  6. GLIPIZIDE. [Concomitant]
     Active Substance: GLIPIZIDE
     Indication: DIABETES MELLITUS
  7. SIMVASTATIN. [Concomitant]
     Active Substance: SIMVASTATIN
     Indication: BLOOD CHOLESTEROL INCREASED
  8. ALENDRONATE [Concomitant]
     Active Substance: ALENDRONATE SODIUM
     Indication: OSTEOPOROSIS

REACTIONS (7)
  - Rash macular [Not Recovered/Not Resolved]
  - Neuralgia [Not Recovered/Not Resolved]
  - Nerve compression [Not Recovered/Not Resolved]
  - Skin haemorrhage [Not Recovered/Not Resolved]
  - Arthralgia [Not Recovered/Not Resolved]
  - Drug ineffective [Not Recovered/Not Resolved]
  - Bone pain [Not Recovered/Not Resolved]

NARRATIVE: CASE EVENT DATE: 2015
